FAERS Safety Report 7563487-1 (Version None)
Quarter: 2011Q2

REPORT INFORMATION
  Report Type: 
  Country: None (occurrence: None)
  Receive Date: 20110615
  Receipt Date: 20110607
  Transmission Date: 20111010
  Serious: Yes (Hospitalization, Other)
  Sender: FDA-Public Use
  Company Number: GER/UKI/11/0017866

PATIENT
  Age: 47 Year
  Sex: Female

DRUGS (7)
  1. SERTRALINE HYDROCHLORIDE [Suspect]
     Indication: DEPRESSION
     Dosage: 200 MG, 1 IN 1 D, ORAL
     Route: 048
  2. CLOZARIL [Suspect]
     Indication: SCHIZOPHRENIA
     Dosage: 150 MG, 2 IN 1 D, ORAL
     Route: 048
     Dates: start: 20080909, end: 20081005
  3. QUETIAPINE FUMARATE [Concomitant]
  4. LAMOTRIGINE [Concomitant]
  5. CLONAZEPAM [Concomitant]
  6. DEPAKOTE [Concomitant]
  7. SERETIDE (SERETIDE /01420901/) [Concomitant]

REACTIONS (8)
  - BODY TEMPERATURE INCREASED [None]
  - TACHYCARDIA [None]
  - ASTHMA [None]
  - TACHYPNOEA [None]
  - OXYGEN SATURATION DECREASED [None]
  - LOWER RESPIRATORY TRACT INFECTION [None]
  - MONOCYTE COUNT INCREASED [None]
  - C-REACTIVE PROTEIN INCREASED [None]
